FAERS Safety Report 18987336 (Version 1)
Quarter: 2021Q1

REPORT INFORMATION
  Report Type: Spontaneous
  Country: US (occurrence: US)
  Receive Date: 20210309
  Receipt Date: 20210309
  Transmission Date: 20210420
  Serious: Yes (Other)
  Sender: FDA-Public Use
  Company Number: None

PATIENT
  Age: 41 Year
  Sex: Female
  Weight: 96.3 kg

DRUGS (1)
  1. DESVENLAFAXINE ER [Suspect]
     Active Substance: DESVENLAFAXINE SUCCINATE
     Indication: MAJOR DEPRESSION
     Dosage: ?          QUANTITY:30 TABLET(S);?
     Route: 048
     Dates: start: 20201101, end: 20210223

REACTIONS (15)
  - Headache [None]
  - Photophobia [None]
  - Dizziness [None]
  - Tinnitus [None]
  - Crying [None]
  - Irritability [None]
  - Loss of personal independence in daily activities [None]
  - Insomnia [None]
  - Weight increased [None]
  - Nausea [None]
  - Migraine [None]
  - Mood swings [None]
  - Diarrhoea [None]
  - Thirst [None]
  - Dry mouth [None]

NARRATIVE: CASE EVENT DATE: 20210223
